FAERS Safety Report 9565444 (Version 3)
Quarter: 2013Q4

REPORT INFORMATION
  Report Type: Report from Study
  Country: US (occurrence: US)
  Receive Date: 20130930
  Receipt Date: 20131218
  Transmission Date: 20140711
  Serious: Yes (Other)
  Sender: FDA-Public Use
  Company Number: US-ACTELION-A-US2013-88808

PATIENT
  Age: 57 Year
  Sex: Female

DRUGS (4)
  1. VELETRI [Suspect]
     Indication: PULMONARY ARTERIAL HYPERTENSION
     Dosage: 7.3 NG/KG, PER MIN
     Route: 042
     Dates: start: 20121206, end: 20130917
  2. SILDENAFIL [Concomitant]
  3. LETAIRIS [Concomitant]
  4. COUMADIN [Concomitant]

REACTIONS (1)
  - Lung transplant [Unknown]
